FAERS Safety Report 21314426 (Version 7)
Quarter: 2025Q2

REPORT INFORMATION
  Report Type: Report from Study
  Country: US (occurrence: US)
  Receive Date: 20220909
  Receipt Date: 20250423
  Transmission Date: 20250717
  Serious: Yes (Hospitalization, Other)
  Sender: TAKEDA
  Company Number: US-TAKEDA-US202004724

PATIENT
  Age: 59 Year
  Sex: Female

DRUGS (4)
  1. HUMAN IMMUNOGLOBULIN G [Suspect]
     Active Substance: HUMAN IMMUNOGLOBULIN G
     Indication: Primary immunodeficiency syndrome
     Dosage: 16 GRAM, 1/WEEK
  2. HUMAN IMMUNOGLOBULIN G [Suspect]
     Active Substance: HUMAN IMMUNOGLOBULIN G
     Indication: Immunodeficiency common variable
     Dosage: 16 GRAM, Q2WEEKS
  3. HUMAN IMMUNOGLOBULIN G [Suspect]
     Active Substance: HUMAN IMMUNOGLOBULIN G
     Indication: IgG deficiency
     Dosage: 16 GRAM, Q2WEEKS
  4. HUMAN IMMUNOGLOBULIN G [Suspect]
     Active Substance: HUMAN IMMUNOGLOBULIN G

REACTIONS (24)
  - Diabetes mellitus [Unknown]
  - Nephrolithiasis [Recovered/Resolved]
  - Urosepsis [Recovered/Resolved]
  - Viral infection [Not Recovered/Not Resolved]
  - COVID-19 [Recovered/Resolved]
  - Administration site bruise [Unknown]
  - Lymphocyte count increased [Unknown]
  - Blood immunoglobulin G decreased [Unknown]
  - Insurance issue [Unknown]
  - Ear infection [Unknown]
  - Fungal infection [Unknown]
  - Sinusitis [Unknown]
  - Lymphadenopathy [Unknown]
  - Malaise [Unknown]
  - Cough [Unknown]
  - Headache [Unknown]
  - Respiratory tract infection viral [Unknown]
  - Infusion site mass [Unknown]
  - Infusion site bruising [Unknown]
  - Migraine [Unknown]
  - Blood immunoglobulin M increased [Unknown]
  - Discomfort [Unknown]
  - Arthralgia [Unknown]
  - Pain in extremity [Unknown]

NARRATIVE: CASE EVENT DATE: 20200318
